FAERS Safety Report 18941682 (Version 4)
Quarter: 2021Q2

REPORT INFORMATION
  Report Type: Spontaneous
  Country: JP (occurrence: JP)
  Receive Date: 20210225
  Receipt Date: 20210525
  Transmission Date: 20210717
  Serious: Yes (Death, Hospitalization, Other)
  Sender: FDA-Public Use
  Company Number: JP-ALLERGAN-2107346US

PATIENT
  Sex: Male

DRUGS (23)
  1. BOTOX [Suspect]
     Active Substance: ONABOTULINUMTOXINA
     Dosage: 350 UNITS, SINGLE
     Route: 030
     Dates: start: 201911, end: 201911
  2. PHENOBAL [PHENOBARBITAL] [Concomitant]
     Active Substance: PHENOBARBITAL
     Indication: PRODUCT USED FOR UNKNOWN INDICATION
     Dosage: 22.5 MG, BID, AFTER BREAKFAST AND DINNER
     Route: 048
  3. LIORESAL [Concomitant]
     Active Substance: BACLOFEN
     Indication: PRODUCT USED FOR UNKNOWN INDICATION
     Dosage: 5 MG, QD, AFTER BREAKFAST
     Route: 048
  4. PICOSULFATE NA [Concomitant]
     Active Substance: SODIUM PICOSULFATE
     Indication: CONSTIPATION
     Dosage: 30 ML, PRN, AT CONSTIPATION, AS INSTRUCTED BY PHYSICIA
     Route: 048
  5. POLAPREZINC [Concomitant]
     Active Substance: POLAPREZINC
     Indication: PRODUCT USED FOR UNKNOWN INDICATION
     Dosage: 75 MG, BID, AFTER BREAKFAST AND DINNER
     Route: 048
  6. BOTOX [Suspect]
     Active Substance: ONABOTULINUMTOXINA
     Dosage: 350 UNITS, SINGLE
     Route: 030
     Dates: start: 201907, end: 201907
  7. MADOPAR [Concomitant]
     Active Substance: BENSERAZIDE HYDROCHLORIDE\LEVODOPA
     Indication: PRODUCT USED FOR UNKNOWN INDICATION
     Dosage: 1.5 DF, BID, AFTER BREAKFAST AND DINNER
     Route: 048
  8. KEPPRA [Concomitant]
     Active Substance: LEVETIRACETAM
     Indication: PRODUCT USED FOR UNKNOWN INDICATION
     Dosage: 1 G, BID, AFTER BREAKFAST AND DINNER
     Route: 048
  9. LAC?B GRANULAR POWDER N [Concomitant]
     Indication: PRODUCT USED FOR UNKNOWN INDICATION
     Dosage: TID, 0.6 G IN THE MORNING, 1.2 G AT NOON, 1.2 G IN THE EVENING
     Route: 048
  10. VALPROATE NA [Concomitant]
     Active Substance: VALPROATE SODIUM
     Indication: PRODUCT USED FOR UNKNOWN INDICATION
     Dosage: TID, 0.6 G IN THE MORNING, 1.2 G AT NOON, 1.2 G IN THE EVENING
     Route: 048
  11. HEPARINOID [Concomitant]
     Active Substance: CHONDROITIN SULFATE (BOVINE)
     Indication: PRODUCT USED FOR UNKNOWN INDICATION
     Dosage: 50 G, ONCE TO TWICE, AS INSTRUCTED BY PHYSICIAN
     Route: 061
  12. RIVOTRIL [Concomitant]
     Active Substance: CLONAZEPAM
     Indication: PRODUCT USED FOR UNKNOWN INDICATION
     Dosage: 2 MG, BID, AFTER BREAKFAST AND DINNER
     Route: 048
  13. ALEVIATIN [PHENYTOIN SODIUM] [Concomitant]
     Active Substance: PHENYTOIN SODIUM
     Indication: PRODUCT USED FOR UNKNOWN INDICATION
     Dosage: 1 G, QD (INCLUDED AT THE 3RD INJECTION)
     Route: 048
  14. TWINLINE [Concomitant]
     Active Substance: DIETARY SUPPLEMENT
     Indication: PRODUCT USED FOR UNKNOWN INDICATION
     Dosage: 1600 ML/DAY, TID, AS INSTRUCTED BY PHYSICIAN
     Route: 048
  15. KETOCONAZOL [Concomitant]
     Active Substance: KETOCONAZOLE
     Indication: PRODUCT USED FOR UNKNOWN INDICATION
     Dosage: 40 G, QD
     Route: 061
  16. TOKAKUJOKITO [Concomitant]
     Indication: CONSTIPATION
     Dosage: 3 G, PRN, AT CONSTIPATION
  17. NADIFLOXACIN [Concomitant]
     Active Substance: NADIFLOXACIN
     Indication: PRODUCT USED FOR UNKNOWN INDICATION
     Dosage: 20 ML, BID
     Route: 061
  18. BOTOX [Suspect]
     Active Substance: ONABOTULINUMTOXINA
     Indication: MUSCLE SPASTICITY
     Dosage: 400 UNITS, SINGLE
     Route: 030
     Dates: start: 20200701, end: 20200701
  19. LANSOPRAZOLE. [Concomitant]
     Active Substance: LANSOPRAZOLE
     Indication: PRODUCT USED FOR UNKNOWN INDICATION
     Dosage: 15 MG, QD, AFTER DINNER
  20. BOTOX [Suspect]
     Active Substance: ONABOTULINUMTOXINA
     Dosage: 200 UNITS, SINGLE
     Route: 030
     Dates: start: 20190220, end: 20190220
  21. VIMPAT [Concomitant]
     Active Substance: LACOSAMIDE
     Indication: PRODUCT USED FOR UNKNOWN INDICATION
     Dosage: 50 MG, QD, AFTER DINNER
     Route: 048
  22. AMANTADINE HYDROCHLORIDE. [Concomitant]
     Active Substance: AMANTADINE HYDROCHLORIDE
     Indication: PRODUCT USED FOR UNKNOWN INDICATION
     Dosage: 50 MG, TID, AFTER EVERY MEAL
     Route: 048
  23. AZUNOL [GUAIAZULENE] [Concomitant]
     Active Substance: GUAIAZULENE
     Indication: PRODUCT USED FOR UNKNOWN INDICATION
     Dosage: 20 G, BID
     Route: 061

REACTIONS (6)
  - Infection [Fatal]
  - Myocardial infarction [Unknown]
  - Acute respiratory failure [Unknown]
  - Cardiac failure [Unknown]
  - Cardiac failure congestive [Unknown]
  - Pneumonia [Fatal]

NARRATIVE: CASE EVENT DATE: 20200920
